FAERS Safety Report 23573299 (Version 1)
Quarter: 2024Q1

REPORT INFORMATION
  Report Type: Spontaneous
  Country: FR (occurrence: FR)
  Receive Date: 20240228
  Receipt Date: 20240228
  Transmission Date: 20240409
  Serious: Yes (Disabling)
  Sender: FDA-Public Use
  Company Number: FR-SA-SAC20240223000791

PATIENT
  Sex: Female
  Weight: 87 kg

DRUGS (1)
  1. MYOZYME [Suspect]
     Active Substance: ALGLUCOSIDASE ALFA
     Indication: Glycogen storage disease type II
     Dosage: 20 MG/KG, QOW
     Route: 065
     Dates: start: 20080408

REACTIONS (4)
  - Gait disturbance [Not Recovered/Not Resolved]
  - Hypokinesia [Unknown]
  - Dyspnoea [Unknown]
  - Fatigue [Unknown]
